FAERS Safety Report 12582440 (Version 1)
Quarter: 2016Q3

REPORT INFORMATION
  Report Type: Spontaneous
  Country: US (occurrence: None)
  Receive Date: 20160721
  Receipt Date: 20160721
  Transmission Date: 20161109
  Serious: No
  Sender: FDA-Public Use
  Company Number: None

PATIENT
  Age: 73 Year
  Sex: Female
  Weight: 68.49 kg

DRUGS (12)
  1. AZOPT [Concomitant]
     Active Substance: BRINZOLAMIDE
  2. CLAMARA PATCH [Concomitant]
  3. CALCIUM [Concomitant]
     Active Substance: CALCIUM
  4. COMBIGAN [Suspect]
     Active Substance: BRIMONIDINE TARTRATE\TIMOLOL MALEATE
     Indication: GLAUCOMA
     Dosage: 0.2%/0.5% 1 DROP BWICE DAILY EYE
     Route: 031
     Dates: start: 201402, end: 20160601
  5. VALSARTAN. [Concomitant]
     Active Substance: VALSARTAN
  6. TRAVATAN [Concomitant]
     Active Substance: TRAVOPROST
  7. AMLODIPINE BESYLATE. [Concomitant]
     Active Substance: AMLODIPINE BESYLATE
  8. ALPHAGAN P [Concomitant]
     Active Substance: BRIMONIDINE TARTRATE
  9. ASPIRIN. [Concomitant]
     Active Substance: ASPIRIN
  10. DIGESTIVE PROBIOTIC [Concomitant]
  11. PRAVASTIAN [Concomitant]
  12. MEGA RED OMEGA [Concomitant]

REACTIONS (4)
  - Somnolence [None]
  - Fatigue [None]
  - Activities of daily living impaired [None]
  - Muscular weakness [None]

NARRATIVE: CASE EVENT DATE: 201402
